FAERS Safety Report 19608944 (Version 4)
Quarter: 2021Q3

REPORT INFORMATION
  Report Type: Report from Study
  Country: BR (occurrence: BR)
  Receive Date: 20210726
  Receipt Date: 20210919
  Transmission Date: 20211014
  Serious: Yes (Death, Other)
  Sender: FDA-Public Use
  Company Number: NVSC2021BR167023

PATIENT
  Age: 35 Year
  Sex: Male
  Weight: 70 kg

DRUGS (3)
  1. TRAMETINIB [Suspect]
     Active Substance: TRAMETINIB
     Indication: METASTATIC MALIGNANT MELANOMA
     Dosage: 2 MG, QD
     Route: 065
     Dates: start: 20190621, end: 20210403
  2. DABRAFENIB [Suspect]
     Active Substance: DABRAFENIB
     Indication: METASTATIC MALIGNANT MELANOMA
     Dosage: 150 MG, Q12H
     Route: 065
     Dates: start: 20190621, end: 20210403
  3. IPILIMUMAB [Concomitant]
     Active Substance: IPILIMUMAB
     Indication: PRODUCT USED FOR UNKNOWN INDICATION
     Dosage: UNK
     Route: 065
     Dates: start: 20210405

REACTIONS (7)
  - Back pain [Unknown]
  - Fibrosis [Unknown]
  - Spinal cord injury cervical [Unknown]
  - Paraplegia [Unknown]
  - Neoplasm malignant [Unknown]
  - Metastatic malignant melanoma [Fatal]
  - Malignant neoplasm progression [Fatal]

NARRATIVE: CASE EVENT DATE: 20190705
